FAERS Safety Report 9413735 (Version 2)
Quarter: 2014Q1

REPORT INFORMATION
  Report Type: Spontaneous
  Country: US (occurrence: US)
  Receive Date: 20130722
  Receipt Date: 20140305
  Transmission Date: 20141002
  Serious: No
  Sender: FDA-Public Use
  Company Number: US-009507513-1307USA005383

PATIENT
  Sex: Male

DRUGS (2)
  1. ASMANEX TWISTHALER [Suspect]
     Indication: ASTHMA
     Dosage: UNK
     Route: 055
  2. ASMANEX TWISTHALER [Suspect]
     Dosage: UNK
     Route: 055

REACTIONS (9)
  - Pulmonary congestion [Recovering/Resolving]
  - Asthma [Recovering/Resolving]
  - Product quality issue [Unknown]
  - Cough [Recovering/Resolving]
  - Drug dose omission [Unknown]
  - Drug dose omission [Unknown]
  - Product quality issue [Unknown]
  - Upper airway obstruction [Recovering/Resolving]
  - Respiratory tract congestion [Recovering/Resolving]
